FAERS Safety Report 4363506-X (Version None)
Quarter: 2004Q2

REPORT INFORMATION
  Report Type: 
  Country: None (occurrence: None)
  Receive Date: 20040517
  Receipt Date: 20040402
  Transmission Date: 20050107
  Serious: No
  Sender: FDA-Public Use
  Company Number: S04-USA-01962-01

PATIENT
  Age: 84 Year
  Sex: Female

DRUGS (11)
  1. NAMENDA [Suspect]
     Indication: DEMENTIA ALZHEIMER'S TYPE
     Dosage: 5 MG QD PO
     Route: 048
     Dates: start: 20040309, end: 20040315
  2. NAMENDA [Suspect]
     Indication: DEMENTIA ALZHEIMER'S TYPE
     Dosage: 10 MG QD PO
     Route: 048
     Dates: start: 20040316, end: 20040322
  3. NAMENDA [Suspect]
     Indication: DEMENTIA ALZHEIMER'S TYPE
     Dosage: 15 MG QD PO
     Route: 048
     Dates: start: 20040323, end: 20040329
  4. NAMENDA [Suspect]
     Indication: DEMENTIA ALZHEIMER'S TYPE
     Dosage: 10 MG BID PO
     Route: 048
     Dates: start: 20040330
  5. ARICEPT [Concomitant]
  6. PLAVIX [Concomitant]
  7. CAPTOPRIL [Concomitant]
  8. LIPITOR [Concomitant]
  9. KLONOPIN [Concomitant]
  10. ASPIRIN [Concomitant]
  11. FOLIC ACID [Concomitant]

REACTIONS (1)
  - CONFUSIONAL STATE [None]
